FAERS Safety Report 13942528 (Version 3)
Quarter: 2017Q4

REPORT INFORMATION
  Report Type: Report from Study
  Country: JP (occurrence: JP)
  Receive Date: 20170907
  Receipt Date: 20171219
  Transmission Date: 20180320
  Serious: Yes (Hospitalization)
  Sender: FDA-Public Use
  Company Number: JP-ROCHE-1984592

PATIENT
  Age: 68 Year
  Sex: Female
  Weight: 53.4 kg

DRUGS (9)
  1. CILNIDIPINE [Concomitant]
     Active Substance: CILNIDIPINE
     Indication: HYPERTENSION
  2. DOXORUBICIN [Suspect]
     Active Substance: DOXORUBICIN
     Indication: DIFFUSE LARGE B-CELL LYMPHOMA
     Dosage: DOSE OF LAST DOXORUBICIN TAKEN: 73.5 MG?DATE OF MOST RECENT DOSE OF DOXORUBICIN PRIOR TO SAE: 15/FEB
     Route: 042
     Dates: start: 20121102
  3. VALSARTAN. [Concomitant]
     Active Substance: VALSARTAN
     Indication: HYPERTENSION
  4. SODIUM HYALURONATE [Concomitant]
     Active Substance: HYALURONATE SODIUM
     Indication: SJOGREN^S SYNDROME
  5. CYCLOPHOSPHAMIDE. [Suspect]
     Active Substance: CYCLOPHOSPHAMIDE
     Indication: DIFFUSE LARGE B-CELL LYMPHOMA
     Dosage: DOSE OF LAST CYCLOPHOSPHAMIDE TAKEN 1100 MG?DATE OF LAST DOSE PRIOR TO SAE: 15/FEB/2013?DAY 1 OF EAC
     Route: 042
     Dates: start: 20121102
  6. PREDNISONE. [Suspect]
     Active Substance: PREDNISONE
     Indication: DIFFUSE LARGE B-CELL LYMPHOMA
     Dosage: DOSE OF LAST PREDNISONE TAKEN: 100 MG?DATE OF MOST RECENT DOSE OF PREDNISONE PRIOR TO SAE: 19/FEB/20
     Route: 048
     Dates: start: 20121101
  7. VINCRISTINE [Suspect]
     Active Substance: VINCRISTINE
     Indication: DIFFUSE LARGE B-CELL LYMPHOMA
     Dosage: 1.4 TO 2.0 MG/M2 EVERY 3 WEEKS DAY 1 OF EACH 21 DAY CYCLE (AS PER PROTOCOL)?DOSE OF LAST VINCRISTINE
     Route: 042
     Dates: start: 20121102
  8. RITUXIMAB. [Suspect]
     Active Substance: RITUXIMAB
     Indication: DIFFUSE LARGE B-CELL LYMPHOMA
     Dosage: VOLUME OF LAST RITUXIMAB TAKEN 551 ML?DOSE CONCENTRATION OF LAST RITUXIMAB TAKEN 1 MG/ML?DATE OF LAS
     Route: 042
     Dates: start: 20121101
  9. AMLODIPINE BESILATE [Concomitant]
     Active Substance: AMLODIPINE BESYLATE
     Indication: HYPERTENSION
     Route: 065
     Dates: start: 20150915

REACTIONS (1)
  - Breast cancer [Recovered/Resolved]

NARRATIVE: CASE EVENT DATE: 20170808
